FAERS Safety Report 4849474-2 (Version None)
Quarter: 2005Q4

REPORT INFORMATION
  Report Type: 
  Country: None (occurrence: None)
  Receive Date: 20051207
  Receipt Date: 20051125
  Transmission Date: 20060501
  Serious: Yes (Hospitalization)
  Sender: FDA-Public Use
  Company Number: 2005161926

PATIENT
  Age: 75 Year
  Sex: Female

DRUGS (18)
  1. FLUCONAZOLE [Suspect]
     Indication: VAGINAL CANDIDIASIS
     Dosage: 150 MG, ORAL
     Route: 048
     Dates: start: 20051021
  2. WARFARIN SODIUM [Suspect]
     Indication: PULMONARY EMBOLISM
     Dosage: 3 MG, ORAL
     Route: 048
     Dates: end: 20051113
  3. ISOSORBIDE MONONITRATE [Concomitant]
  4. LANSOPRAZOLE [Concomitant]
  5. DILTIAZEM HYDROCHLORIDE [Concomitant]
  6. SIMVASTATIN [Concomitant]
  7. FUROSEMIDE [Concomitant]
  8. FOSAMAX [Concomitant]
  9. GTN (GLYCERYL TRINITRATE) [Concomitant]
  10. BECLOMETHASONE (BECLOMETASONE) [Concomitant]
  11. SALMETEROL (SALMETEROL) [Concomitant]
  12. SALBUTAMOL (SALBUTAMOL) [Concomitant]
  13. PREDNISONE [Concomitant]
  14. MICONAZOLE NITRATE [Concomitant]
  15. FLETCHER'S PHOSPHATE ENEMA (SODIUM PHOSPHATE, SODIUM PHOSPHATE DIBASIC [Concomitant]
  16. CO-DANTHRAMER (DANTRON, POLOXAMER) [Concomitant]
  17. ANUSOL [Concomitant]
  18. CEPHALEXIN [Concomitant]

REACTIONS (8)
  - DRUG INTERACTION [None]
  - DYSPNOEA [None]
  - EXERCISE TOLERANCE DECREASED [None]
  - INTERNATIONAL NORMALISED RATIO INCREASED [None]
  - NAUSEA [None]
  - RECTAL HAEMORRHAGE [None]
  - SUPRAPUBIC PAIN [None]
  - VAGINAL HAEMORRHAGE [None]
